FAERS Safety Report 6781428-1 (Version None)
Quarter: 2010Q2

REPORT INFORMATION
  Report Type: 
  Country: None (occurrence: None)
  Receive Date: 20100621
  Receipt Date: 20100428
  Transmission Date: 20101027
  Serious: No
  Sender: FDA-Public Use
  Company Number: US-AMGEN-KDL409054

PATIENT
  Sex: Female

DRUGS (12)
  1. ARANESP [Suspect]
     Indication: RENAL FAILURE CHRONIC
     Dates: start: 20070101
  2. ACTONEL [Concomitant]
  3. ZETIA [Concomitant]
  4. DOXAZOSIN MESYLATE [Concomitant]
  5. PREDNISONE [Concomitant]
  6. SYNTHROID [Concomitant]
  7. LEVOTHYROXINE SODIUM [Concomitant]
  8. HYZAAR [Concomitant]
  9. TRAMADOL [Concomitant]
  10. TYLENOL [Concomitant]
  11. VITAMIN D [Concomitant]
  12. MULTI-VITAMINS [Concomitant]

REACTIONS (3)
  - BLOOD PRESSURE DIASTOLIC INCREASED [None]
  - FEELING ABNORMAL [None]
  - MALAISE [None]
